FAERS Safety Report 11674196 (Version 2)
Quarter: 2016Q1

REPORT INFORMATION
  Report Type: Spontaneous
  Country: US (occurrence: US)
  Receive Date: 20151028
  Receipt Date: 20160111
  Transmission Date: 20160525
  Serious: Yes (Hospitalization)
  Sender: FDA-Public Use
  Company Number: US-BAYER-2015-454040

PATIENT
  Age: 32 Year
  Sex: Female

DRUGS (25)
  1. TOPAMAX [Concomitant]
     Active Substance: TOPIRAMATE
  2. EXCEDRIN [CAFFEINE,PARACETAMOL] [Concomitant]
  3. SOLU-MEDROL [Concomitant]
     Active Substance: METHYLPREDNISOLONE SODIUM SUCCINATE
  4. LEVOTHYROXINE. [Concomitant]
     Active Substance: LEVOTHYROXINE
  5. MECLIZINE [Concomitant]
     Active Substance: MECLIZINE HYDROCHLORIDE
  6. NORTRIPTYLINE [Concomitant]
     Active Substance: NORTRIPTYLINE
  7. ACETAZOLAMIDE. [Concomitant]
     Active Substance: ACETAZOLAMIDE
  8. POTASSIUM [Concomitant]
     Active Substance: POTASSIUM
  9. CELEXA [Concomitant]
     Active Substance: CITALOPRAM HYDROBROMIDE
  10. REGLAN [Concomitant]
     Active Substance: METOCLOPRAMIDE HYDROCHLORIDE
  11. HYDROCODONE [Concomitant]
     Active Substance: HYDROCODONE
  12. KETOROLAC [Concomitant]
     Active Substance: KETOROLAC\KETOROLAC TROMETHAMINE
  13. ZOFRAN [Concomitant]
     Active Substance: ONDANSETRON HYDROCHLORIDE
  14. CITALOPRAM [Concomitant]
     Active Substance: CITALOPRAM HYDROBROMIDE
  15. AZITHROMYCIN ANHYDROUS. [Concomitant]
     Active Substance: AZITHROMYCIN ANHYDROUS
  16. FUROSEMIDE. [Concomitant]
     Active Substance: FUROSEMIDE
  17. ATIVAN [Concomitant]
     Active Substance: LORAZEPAM
  18. LASIX [Concomitant]
     Active Substance: FUROSEMIDE
  19. NORCO [Concomitant]
     Active Substance: ACETAMINOPHEN\HYDROCODONE BITARTRATE
  20. COLACE [Concomitant]
     Active Substance: DOCUSATE SODIUM
  21. MIRENA [Suspect]
     Active Substance: LEVONORGESTREL
     Indication: CONTRACEPTION
     Dosage: 20 MCG/24HR, CONT
     Route: 015
     Dates: start: 20100520, end: 20140911
  22. ONDANSETRON [Concomitant]
     Active Substance: ONDANSETRON
  23. DIAMOX SEQUELS [Concomitant]
     Active Substance: ACETAZOLAMIDE
  24. KLOR-CON [Concomitant]
     Active Substance: POTASSIUM CHLORIDE
  25. PEPCID [Concomitant]
     Active Substance: FAMOTIDINE

REACTIONS (9)
  - Vision blurred [None]
  - Benign intracranial hypertension [None]
  - Vomiting [None]
  - Nausea [None]
  - Migraine [None]
  - Headache [None]
  - Dizziness [None]
  - Eye pain [None]
  - Ear pain [None]

NARRATIVE: CASE EVENT DATE: 2010
